FAERS Safety Report 14294065 (Version 2)
Quarter: 2018Q2

REPORT INFORMATION
  Report Type: Spontaneous
  Country: US (occurrence: US)
  Receive Date: 20171217
  Receipt Date: 20180523
  Transmission Date: 20180711
  Serious: No
  Sender: FDA-Public Use
  Company Number: US-ASTRAZENECA-2017SF25055

PATIENT
  Age: 75 Year
  Sex: Female
  Weight: 84 kg

DRUGS (2)
  1. LYNPARZA [Suspect]
     Active Substance: OLAPARIB
     Route: 048
     Dates: start: 20170920, end: 20171205
  2. LYNPARZA [Suspect]
     Active Substance: OLAPARIB
     Route: 048

REACTIONS (7)
  - Hypomagnesaemia [Recovered/Resolved]
  - Myalgia [Unknown]
  - Rash [Unknown]
  - Muscle spasms [Unknown]
  - Arthralgia [Unknown]
  - Hypokalaemia [Recovered/Resolved]
  - Hyponatraemia [Recovered/Resolved]

NARRATIVE: CASE EVENT DATE: 20171205
